FAERS Safety Report 17172365 (Version 5)
Quarter: 2021Q3

REPORT INFORMATION
  Report Type: Report from Study
  Country: US (occurrence: US)
  Receive Date: 20191219
  Receipt Date: 20210816
  Transmission Date: 20211014
  Serious: No
  Sender: FDA-Public Use
  Company Number: NVSC2019US074642

PATIENT
  Sex: Male

DRUGS (1)
  1. COSENTYX [Suspect]
     Active Substance: SECUKINUMAB
     Indication: PRODUCT USED FOR UNKNOWN INDICATION
     Dosage: UNK
     Route: 065

REACTIONS (9)
  - Swelling [Unknown]
  - Joint swelling [Unknown]
  - Gait disturbance [Unknown]
  - Pain [Unknown]
  - Urticaria [Unknown]
  - Psoriasis [Unknown]
  - Gait inability [Unknown]
  - Condition aggravated [Unknown]
  - Dry skin [Unknown]
